FAERS Safety Report 8199201-9 (Version None)
Quarter: 2012Q1

REPORT INFORMATION
  Report Type: 
  Country: None (occurrence: None)
  Receive Date: 20120306
  Receipt Date: 20120224
  Transmission Date: 20120608
  Serious: Yes (Hospitalization)
  Sender: FDA-Public Use
  Company Number: AUR-APL-2012-01123

PATIENT
  Age: 62 Year
  Sex: Female
  Weight: 58.9676 kg

DRUGS (3)
  1. MONISTAT CREAM (MICONAZOLE NITRATE) [Concomitant]
  2. ALENDRONIC ACID (ALENDRONIC ACID) [Suspect]
     Indication: OSTEOPOROSIS
     Dosage: 10 MG (70 MG, 1 IN 1 WK), ORAL
     Route: 048
     Dates: start: 20120121
  3. PREMARIN [Concomitant]

REACTIONS (5)
  - RASH [None]
  - ERYTHEMA [None]
  - NAUSEA [None]
  - LOSS OF CONSCIOUSNESS [None]
  - PRURITUS [None]
